FAERS Safety Report 4497292-X (Version None)
Quarter: 2004Q3

REPORT INFORMATION
  Report Type: 
  Country: None (occurrence: None)
  Receive Date: 20040927
  Receipt Date: 20040721
  Transmission Date: 20050211
  Serious: No
  Sender: FDA-Public Use
  Company Number: USA040773317

PATIENT
  Age: 5 Year
  Sex: Male
  Weight: 23 kg

DRUGS (4)
  1. STRATTERA [Suspect]
     Indication: ATTENTION DEFICIT/HYPERACTIVITY DISORDER
     Dosage: 35 MG DAY
     Dates: start: 20030901
  2. TENEX (GUAFACINE HYDROCHLORIDE) [Concomitant]
  3. TRAZADONE (TRAZODONE) [Concomitant]
  4. RISPERDAL [Concomitant]

REACTIONS (4)
  - DRUG EFFECT DECREASED [None]
  - EMOTIONAL DISORDER [None]
  - MUSCLE TWITCHING [None]
  - TIC [None]
